FAERS Safety Report 17153556 (Version 1)
Quarter: 2019Q4

REPORT INFORMATION
  Report Type: Spontaneous
  Country: CA (occurrence: CA)
  Receive Date: 20191213
  Receipt Date: 20191213
  Transmission Date: 20200122
  Serious: Yes (Other)
  Sender: FDA-Public Use
  Company Number: CA-B.BRAUN MEDICAL INC.-2077822

PATIENT
  Age: 70 Year
  Sex: Male

DRUGS (12)
  1. MULTIVITAMINE (S) [Suspect]
     Active Substance: VITAMINS
     Route: 042
  2. THIAMINE HCL [Concomitant]
     Active Substance: THIAMINE HYDROCHLORIDE
  3. BICARBONATE?CONCENTRATE D17000 [Suspect]
     Active Substance: SODIUM BICARBONATE
     Route: 042
  4. RIBOFLAVIN [Concomitant]
     Active Substance: RIBOFLAVIN
  5. VITAMIN B6 [Suspect]
     Active Substance: PYRIDOXINE HYDROCHLORIDE
     Route: 042
  6. VITAMIN C [Suspect]
     Active Substance: ASCORBIC ACID
     Route: 042
  7. STERILE WATER [Suspect]
     Active Substance: WATER
     Indication: PRODUCT USED FOR UNKNOWN INDICATION
     Route: 042
  8. NIACINAMIDE [Concomitant]
     Active Substance: NIACINAMIDE
  9. PYRIDOXINE [Concomitant]
     Active Substance: PYRIDOXINE
  10. CYANOCOBALAMIN. [Concomitant]
     Active Substance: CYANOCOBALAMIN
  11. ILOPAN [Concomitant]
  12. VITAMIN B COMPLEX [Suspect]
     Active Substance: CYANOCOBALAMIN\DEXPANTHENOL\NIACINAMIDE\PYRIDOXINE HYDROCHLORIDE\RIBOFLAVIN 5^-PHOSPHATE SODIUM\THIAMINE HYDROCHLORIDE\VITAMIN B COMPLEX
     Route: 042

REACTIONS (1)
  - Rash [None]
